FAERS Safety Report 7766463-9 (Version None)
Quarter: 2011Q3

REPORT INFORMATION
  Report Type: 
  Country: None (occurrence: None)
  Receive Date: 20110922
  Receipt Date: 20110914
  Transmission Date: 20111222
  Serious: No
  Sender: FDA-Public Use
  Company Number: US-BIOGENIDEC-2011BI035519

PATIENT
  Age: 31 Year
  Sex: Male

DRUGS (5)
  1. TYSABRI [Suspect]
     Indication: MULTIPLE SCLEROSIS
     Route: 042
     Dates: start: 20110906
  2. TYSABRI [Suspect]
     Route: 042
     Dates: start: 20081226, end: 20100520
  3. AVONEX [Concomitant]
     Indication: MULTIPLE SCLEROSIS
     Route: 030
     Dates: start: 20100821
  4. AVONEX [Concomitant]
     Route: 030
  5. AVONEX [Concomitant]
     Route: 030

REACTIONS (1)
  - NASOPHARYNGITIS [None]
